FAERS Safety Report 6327663-8 (Version None)
Quarter: 2009Q3

REPORT INFORMATION
  Report Type: 
  Country: None (occurrence: None)
  Receive Date: 20090825
  Receipt Date: 20090714
  Transmission Date: 20100115
  Serious: No
  Sender: FDA-Public Use
  Company Number: US-BAYER-200929112NA

PATIENT
  Sex: Female

DRUGS (1)
  1. MAGNEVIST [Suspect]
     Indication: NUCLEAR MAGNETIC RESONANCE IMAGING
     Dosage: TOTAL DAILY DOSE: 8 ML
     Route: 042

REACTIONS (4)
  - DRY THROAT [None]
  - NASAL DRYNESS [None]
  - NAUSEA [None]
  - PARAESTHESIA ORAL [None]
